FAERS Safety Report 5524193-8 (Version None)
Quarter: 2007Q4

REPORT INFORMATION
  Report Type: 
  Country: None (occurrence: None)
  Receive Date: 20071121
  Receipt Date: 20071112
  Transmission Date: 20080405
  Serious: Yes (Other)
  Sender: FDA-Public Use
  Company Number: AT-PFIZER INC-2007094611

PATIENT
  Sex: Male

DRUGS (1)
  1. SUTENT [Suspect]
     Route: 048

REACTIONS (1)
  - INTRACARDIAC THROMBUS [None]
